FAERS Safety Report 13701459 (Version 2)
Quarter: 2017Q2

REPORT INFORMATION
  Report Type: Spontaneous
  Country: US (occurrence: US)
  Receive Date: 20170629
  Receipt Date: 20170629
  Transmission Date: 20170830
  Serious: No
  Sender: FDA-Public Use
  Company Number: US-ALLERGAN-1710382US

PATIENT
  Sex: Female

DRUGS (4)
  1. VIBERZI [Suspect]
     Active Substance: ELUXADOLINE
     Indication: IRRITABLE BOWEL SYNDROME
     Dosage: 100 MG, QD TRYING TO QOD
     Route: 048
  2. VIBERZI [Suspect]
     Active Substance: ELUXADOLINE
     Indication: IRRITABLE BOWEL SYNDROME
     Dosage: 75 MG, QD TRYING TO QOD
     Route: 048
  3. VIBERZI [Suspect]
     Active Substance: ELUXADOLINE
     Indication: GASTROINTESTINAL BACTERIAL OVERGROWTH
  4. VIBERZI [Suspect]
     Active Substance: ELUXADOLINE
     Indication: GASTROINTESTINAL BACTERIAL OVERGROWTH

REACTIONS (5)
  - Inappropriate schedule of drug administration [Unknown]
  - Incorrect dose administered [Unknown]
  - Constipation [Unknown]
  - Abdominal distension [Unknown]
  - Abdominal pain [Unknown]
